FAERS Safety Report 11272441 (Version 2)
Quarter: 2015Q3

REPORT INFORMATION
  Report Type: Spontaneous
  Country: US (occurrence: US)
  Receive Date: 20150715
  Receipt Date: 20150721
  Transmission Date: 20151125
  Serious: No
  Sender: FDA-Public Use
  Company Number: US-BIOGENIDEC-2015BI096291

PATIENT
  Sex: Female
  Weight: 48 kg

DRUGS (11)
  1. OCUVITE (ASCORBIC ACID, RETINOL, TOCOPHEROL) [Concomitant]
  2. CALCIUM [Concomitant]
     Active Substance: CALCIUM
  3. VITAMIN D3 [Concomitant]
     Active Substance: CHOLECALCIFEROL
  4. BUPROPION (BUPROPION HYDROCHLORIDE) [Concomitant]
  5. ESCITALOPRAM [Concomitant]
     Active Substance: ESCITALOPRAM OXALATE
  6. TECFIDERA [Suspect]
     Active Substance: DIMETHYL FUMARATE
     Indication: MULTIPLE SCLEROSIS
     Route: 048
     Dates: end: 201505
  7. GABAPENTIN. [Concomitant]
     Active Substance: GABAPENTIN
  8. AMPYRA [Concomitant]
     Active Substance: DALFAMPRIDINE
     Indication: GAIT DISTURBANCE
     Route: 048
  9. TIZANIDINE. [Concomitant]
     Active Substance: TIZANIDINE
  10. CRANBERRY. [Concomitant]
     Active Substance: CRANBERRY
  11. ASPIRIN. [Concomitant]
     Active Substance: ASPIRIN

REACTIONS (2)
  - Fall [Recovered/Resolved]
  - Balance disorder [Recovered/Resolved]
